FAERS Safety Report 9135414 (Version 1)
Quarter: 2013Q1

REPORT INFORMATION
  Report Type: Spontaneous
  Country: NL (occurrence: NL)
  Receive Date: 20130304
  Receipt Date: 20130304
  Transmission Date: 20140127
  Serious: Yes (Other)
  Sender: FDA-Public Use
  Company Number: NL-ABBOTT-13P-114-1054402-00

PATIENT
  Sex: Male

DRUGS (3)
  1. KALETRA [Suspect]
     Indication: HIV INFECTION
     Dates: start: 200705, end: 200809
  2. AZT [Suspect]
     Indication: HIV INFECTION
     Route: 065
  3. TRIZIVIR [Concomitant]
     Indication: HIV INFECTION
     Route: 065
     Dates: start: 2007, end: 2008

REACTIONS (6)
  - Progressive multifocal leukoencephalopathy [Not Recovered/Not Resolved]
  - Blood triglycerides increased [Not Recovered/Not Resolved]
  - Blood cholesterol increased [Not Recovered/Not Resolved]
  - Diarrhoea [Recovered/Resolved]
  - Dyspepsia [Recovered/Resolved]
  - Anaemia [Recovered/Resolved]
